FAERS Safety Report 6162733-9 (Version None)
Quarter: 2009Q2

REPORT INFORMATION
  Report Type: 
  Country: None (occurrence: None)
  Receive Date: 20090421
  Receipt Date: 20080409
  Transmission Date: 20091009
  Serious: No
  Sender: FDA-Public Use
  Company Number: US-ASTRAZENECA-2008UW07231

PATIENT
  Age: 83 Year
  Sex: Female
  Weight: 53.5 kg

DRUGS (5)
  1. TOPROL-XL [Suspect]
     Dosage: 50 MG ONCE DAILY IN DIVIDED DOSES
     Route: 048
  2. TOPROL-XL [Suspect]
     Dosage: 75 MG
     Route: 048
  3. TOPROL-XL [Suspect]
     Route: 048
  4. MAXZIDE [Concomitant]
     Dosage: 25
  5. BUFFERIN [Concomitant]

REACTIONS (5)
  - FATIGUE [None]
  - HYPOAESTHESIA ORAL [None]
  - HYPOGLYCAEMIA [None]
  - PARAESTHESIA [None]
  - TREMOR [None]
